FAERS Safety Report 6067258-7 (Version None)
Quarter: 2009Q1

REPORT INFORMATION
  Report Type: 
  Country: None (occurrence: None)
  Receive Date: 20090205
  Receipt Date: 20090127
  Transmission Date: 20090719
  Serious: Yes (Other)
  Sender: FDA-Public Use
  Company Number: GR-AVENTIS-200910910GDDC

PATIENT
  Age: 67 Year
  Sex: Male

DRUGS (6)
  1. DOCETAXEL [Suspect]
     Dosage: DOSE: UNK
  2. CISPLATIN [Suspect]
     Dosage: DOSE: UNK
  3. VINORELBINE [Suspect]
     Dosage: DOSE: UNK
  4. TOPOTECAN [Suspect]
     Dosage: DOSE: UNK
  5. GM-CSF [Suspect]
     Indication: SUPPORTIVE CARE
     Dosage: DOSE: UNK
  6. EPOGEN [Concomitant]
     Indication: SUPPORTIVE CARE

REACTIONS (1)
  - MULTIPLE MYELOMA [None]
